FAERS Safety Report 19478416 (Version 1)
Quarter: 2021Q2

REPORT INFORMATION
  Report Type: Spontaneous
  Country: FR (occurrence: FR)
  Receive Date: 20210630
  Receipt Date: 20210630
  Transmission Date: 20210717
  Serious: Yes (Hospitalization, Other)
  Sender: FDA-Public Use
  Company Number: FR-GLAXOSMITHKLINE-FR2021140322

PATIENT
  Age: 74 Year
  Sex: Female

DRUGS (2)
  1. ENDOXAN [Suspect]
     Active Substance: CYCLOPHOSPHAMIDE
     Indication: PRODUCT USED FOR UNKNOWN INDICATION
     Dosage: 750 MG
     Route: 065
     Dates: start: 20201224, end: 20210225
  2. ATOVAQUONE. [Suspect]
     Active Substance: ATOVAQUONE
     Indication: PRODUCT USED FOR UNKNOWN INDICATION
     Dosage: 1500 MG
     Route: 065
     Dates: start: 20210110, end: 20210226

REACTIONS (2)
  - Pancytopenia [Recovering/Resolving]
  - Anaemia [Recovering/Resolving]
